FAERS Safety Report 5521523-8 (Version None)
Quarter: 2007Q4

REPORT INFORMATION
  Report Type: 
  Country: None (occurrence: None)
  Receive Date: 20071116
  Receipt Date: 20071116
  Transmission Date: 20080405
  Serious: No
  Sender: FDA-Public Use
  Company Number: None

PATIENT
  Age: 60 Year
  Sex: Male

DRUGS (1)
  1. GABAPENTIN [Suspect]
     Dosage: 600 MG BID PO
     Route: 048
     Dates: start: 20060420, end: 20060817

REACTIONS (2)
  - DIZZINESS [None]
  - SEDATION [None]
